FAERS Safety Report 4726354-4 (Version None)
Quarter: 2005Q3

REPORT INFORMATION
  Report Type: 
  Country: None (occurrence: None)
  Receive Date: 20050725
  Receipt Date: 20050712
  Transmission Date: 20060218
  Serious: Yes (Hospitalization)
  Sender: FDA-Public Use
  Company Number: 2005102186

PATIENT
  Age: 55 Year
  Sex: Female

DRUGS (7)
  1. GENOTROPIN [Suspect]
     Indication: BLOOD GROWTH HORMONE DECREASED
     Dosage: 0.6 MG (0.6 MG, ONCE DAILY), SUBCUTANEOUS; 0.4 MG (0.4 MG, ONCE DAY), SUBCUTANEOUS
     Route: 058
     Dates: start: 19980513, end: 20040101
  2. GENOTROPIN [Suspect]
     Indication: BLOOD GROWTH HORMONE DECREASED
     Dosage: 0.6 MG (0.6 MG, ONCE DAILY), SUBCUTANEOUS; 0.4 MG (0.4 MG, ONCE DAY), SUBCUTANEOUS
     Route: 058
     Dates: start: 20040101, end: 20050501
  3. LEVAXIN (LEVOTHYROXINE SODIUM) [Concomitant]
  4. CORTISONE ACETATE [Concomitant]
  5. ZOCOR [Concomitant]
  6. PROGYNOVA (ESTRADIOL VALERATE) [Concomitant]
  7. VITAMIN B12 [Concomitant]

REACTIONS (4)
  - COLON CANCER [None]
  - GENITAL CYST [None]
  - OSTEOPOROSIS [None]
  - OVERDOSE [None]
